FAERS Safety Report 25626983 (Version 1)
Quarter: 2025Q3

REPORT INFORMATION
  Report Type: Spontaneous
  Country: US (occurrence: US)
  Receive Date: 20250731
  Receipt Date: 20250731
  Transmission Date: 20251021
  Serious: Yes (Life-Threatening, Hospitalization)
  Sender: MYLAN
  Company Number: US-MYLANLABS-2025M1064041

PATIENT
  Age: 64 Year
  Sex: Male

DRUGS (20)
  1. EPINEPHRINE [Suspect]
     Active Substance: EPINEPHRINE
     Indication: Lip swelling
  2. EPINEPHRINE [Suspect]
     Active Substance: EPINEPHRINE
     Indication: Swollen tongue
     Route: 065
  3. EPINEPHRINE [Suspect]
     Active Substance: EPINEPHRINE
     Route: 065
  4. EPINEPHRINE [Suspect]
     Active Substance: EPINEPHRINE
  5. FAMOTIDINE [Suspect]
     Active Substance: FAMOTIDINE
     Indication: Lip swelling
  6. FAMOTIDINE [Suspect]
     Active Substance: FAMOTIDINE
     Indication: Swollen tongue
     Route: 065
  7. FAMOTIDINE [Suspect]
     Active Substance: FAMOTIDINE
     Route: 065
  8. FAMOTIDINE [Suspect]
     Active Substance: FAMOTIDINE
  9. METHYLPREDNISOLONE [Suspect]
     Active Substance: METHYLPREDNISOLONE
     Indication: Lip swelling
  10. METHYLPREDNISOLONE [Suspect]
     Active Substance: METHYLPREDNISOLONE
     Indication: Swollen tongue
     Route: 065
  11. METHYLPREDNISOLONE [Suspect]
     Active Substance: METHYLPREDNISOLONE
     Route: 065
  12. METHYLPREDNISOLONE [Suspect]
     Active Substance: METHYLPREDNISOLONE
  13. LISINOPRIL [Suspect]
     Active Substance: LISINOPRIL
     Indication: Hypertension
  14. LISINOPRIL [Suspect]
     Active Substance: LISINOPRIL
     Route: 065
  15. LISINOPRIL [Suspect]
     Active Substance: LISINOPRIL
     Route: 065
  16. LISINOPRIL [Suspect]
     Active Substance: LISINOPRIL
  17. FIRAZYR [Suspect]
     Active Substance: ICATIBANT ACETATE
     Indication: Lip swelling
  18. FIRAZYR [Suspect]
     Active Substance: ICATIBANT ACETATE
     Indication: Swollen tongue
     Route: 065
  19. FIRAZYR [Suspect]
     Active Substance: ICATIBANT ACETATE
     Route: 065
  20. FIRAZYR [Suspect]
     Active Substance: ICATIBANT ACETATE

REACTIONS (2)
  - Drug ineffective [Unknown]
  - Off label use [Unknown]
